FAERS Safety Report 12283922 (Version 1)
Quarter: 2016Q2

REPORT INFORMATION
  Report Type: Spontaneous
  Country: US (occurrence: US)
  Receive Date: 20160419
  Receipt Date: 20160419
  Transmission Date: 20160815
  Serious: No
  Sender: FDA-Public Use
  Company Number: US-BANPHARM-20154511

PATIENT
  Age: 66 Year
  Sex: Male
  Weight: 86.18 kg

DRUGS (4)
  1. VITAMIN D3 [Concomitant]
     Active Substance: CHOLECALCIFEROL
  2. OMEGA 3 [Concomitant]
     Active Substance: OMEGA-3 FATTY ACIDS
  3. ALEVE [Suspect]
     Active Substance: NAPROXEN SODIUM
     Dosage: 1 DF, QD,
     Route: 048
  4. CAPSULE FULL OF GREEN VEGETABLES [Concomitant]

REACTIONS (2)
  - Incorrect drug administration duration [Unknown]
  - Drug effect incomplete [Unknown]
